FAERS Safety Report 23310062 (Version 3)
Quarter: 2024Q1

REPORT INFORMATION
  Report Type: Spontaneous
  Country: JP (occurrence: JP)
  Receive Date: 20231218
  Receipt Date: 20240122
  Transmission Date: 20240410
  Serious: Yes (Death, Hospitalization, Other)
  Sender: FDA-Public Use
  Company Number: JP-ONO-2023JP030811

PATIENT
  Age: 7 Decade
  Sex: Male

DRUGS (1)
  1. OPDIVO [Suspect]
     Active Substance: NIVOLUMAB
     Indication: Malignant melanoma
     Dosage: UNK
     Route: 041

REACTIONS (6)
  - Cytomegalovirus enterocolitis [Fatal]
  - Immune-mediated hepatitis [Recovering/Resolving]
  - Immune-mediated enterocolitis [Fatal]
  - Bacterial translocation [Fatal]
  - Immune reconstitution inflammatory syndrome [Unknown]
  - Immune-mediated myositis [Unknown]
